FAERS Safety Report 6661776-6 (Version None)
Quarter: 2010Q1

REPORT INFORMATION
  Report Type: 
  Country: None (occurrence: None)
  Receive Date: 20100331
  Receipt Date: 20090617
  Transmission Date: 20100710
  Serious: Yes (Other)
  Sender: FDA-Public Use
  Company Number: US-BRISTOL-MYERS SQUIBB COMPANY-14670798

PATIENT
  Sex: Female

DRUGS (1)
  1. ERBITUX [Suspect]
     Dosage: 1 ST DOSE
     Dates: start: 20090601, end: 20090601

REACTIONS (1)
  - INFUSION RELATED REACTION [None]
